FAERS Safety Report 19129651 (Version 1)
Quarter: 2021Q2

REPORT INFORMATION
  Report Type: Spontaneous
  Country: US (occurrence: US)
  Receive Date: 20210413
  Receipt Date: 20210413
  Transmission Date: 20210717
  Serious: No
  Sender: FDA-Public Use
  Company Number: US-TOPROL-2020000242

PATIENT
  Sex: Female
  Weight: 115.65 kg

DRUGS (8)
  1. WARFARIN [Concomitant]
     Active Substance: WARFARIN
     Route: 048
  2. METOPROLOL SUCCINATE. [Suspect]
     Active Substance: METOPROLOL SUCCINATE
     Dosage: UNK
     Route: 048
  3. OMEPRAZOLE. [Concomitant]
     Active Substance: OMEPRAZOLE
     Dosage: UNK
     Route: 048
     Dates: start: 2004
  4. BYDUREON [Concomitant]
     Active Substance: EXENATIDE
     Dosage: 2 DF, ONCE WEEKLY
     Route: 058
     Dates: start: 20200217
  5. CLONIDINE. [Concomitant]
     Active Substance: CLONIDINE
  6. DIGOXIN. [Concomitant]
     Active Substance: DIGOXIN
  7. FENOFIBRATE. [Concomitant]
     Active Substance: FENOFIBRATE
     Route: 048
  8. POTASSIUM [Concomitant]
     Active Substance: POTASSIUM
     Dosage: 20 MEQ, UNK
     Route: 048

REACTIONS (1)
  - Off label use [Unknown]
